FAERS Safety Report 24374045 (Version 1)
Quarter: 2024Q3

REPORT INFORMATION
  Report Type: Spontaneous
  Country: US (occurrence: US)
  Receive Date: 20240927
  Receipt Date: 20240927
  Transmission Date: 20241017
  Serious: No
  Sender: VIVUS
  Company Number: US-VIVUS LLC-2024V1000479

PATIENT
  Sex: Male
  Weight: 121.67 kg

DRUGS (1)
  1. QSYMIA [Suspect]
     Active Substance: PHENTERMINE HYDROCHLORIDE\TOPIRAMATE
     Indication: Weight decreased
     Route: 048

REACTIONS (4)
  - Dyspnoea [Unknown]
  - Glucose tolerance impaired [Unknown]
  - Palpitations [Unknown]
  - Cough [Unknown]
